FAERS Safety Report 23643533 (Version 1)
Quarter: 2024Q1

REPORT INFORMATION
  Report Type: Spontaneous
  Country: US (occurrence: None)
  Receive Date: 20240316
  Receipt Date: 20240316
  Transmission Date: 20240409
  Serious: Yes (Hospitalization)
  Sender: FDA-Public Use
  Company Number: None

PATIENT
  Age: 53 Year
  Sex: Female
  Weight: 90 kg

DRUGS (7)
  1. SPIRONOLACTONE [Suspect]
     Active Substance: SPIRONOLACTONE
     Indication: Fluid retention
     Dosage: FREQUENCY : DAILY;?
     Route: 048
     Dates: start: 20240221, end: 20240309
  2. ASPIRIN [Concomitant]
     Active Substance: ASPIRIN
  3. ATORVASTATIN [Concomitant]
     Active Substance: ATORVASTATIN
  4. Nefedipine [Concomitant]
  5. CLOPIDOGREL [Concomitant]
     Active Substance: CLOPIDOGREL BISULFATE
  6. PANTOPRAZOLE [Concomitant]
     Active Substance: PANTOPRAZOLE
  7. Succralfate [Concomitant]

REACTIONS (5)
  - Oesophageal spasm [None]
  - Chest pain [None]
  - Chest discomfort [None]
  - Therapy cessation [None]
  - Unevaluable event [None]

NARRATIVE: CASE EVENT DATE: 20240224
